FAERS Safety Report 16294301 (Version 1)
Quarter: 2019Q2

REPORT INFORMATION
  Report Type: Spontaneous
  Country: US (occurrence: US)
  Receive Date: 20190509
  Receipt Date: 20190509
  Transmission Date: 20190711
  Serious: No
  Sender: FDA-Public Use
  Company Number: US-ROCHE-2169878

PATIENT
  Sex: Female

DRUGS (1)
  1. ESBRIET [Suspect]
     Active Substance: PIRFENIDONE
     Indication: PULMONARY FIBROSIS
     Dosage: 2 CAPSULES 3 TIMES A DAY
     Route: 048

REACTIONS (3)
  - Intentional product use issue [Unknown]
  - Hypoacusis [Unknown]
  - Off label use [Unknown]
